FAERS Safety Report 14351142 (Version 10)
Quarter: 2020Q1

REPORT INFORMATION
  Report Type: Report from Study
  Country: DE (occurrence: DE)
  Receive Date: 20180104
  Receipt Date: 20200203
  Transmission Date: 20200409
  Serious: Yes (Hospitalization, Other)
  Sender: FDA-Public Use
  Company Number: DE-MYLANLABS-2018M1000218

PATIENT
  Age: 61 Year
  Sex: Female
  Weight: 70 kg

DRUGS (21)
  1. AIRFLUSAL FORSPIRO [Suspect]
     Active Substance: FLUTICASONE PROPIONATE\SALMETEROL XINAFOATE
     Dosage: 2 OT, QD
     Route: 065
  2. HUMIRA [Suspect]
     Active Substance: ADALIMUMAB
     Dosage: 1 IN 4 WEEK/1 DF, Q4W
     Route: 058
     Dates: start: 2018, end: 20190218
  3. HUMIRA [Suspect]
     Active Substance: ADALIMUMAB
     Dosage: UNK
     Route: 058
     Dates: start: 2019, end: 20190625
  4. AMJEVITA [Suspect]
     Active Substance: ADALIMUMAB-ATTO
     Indication: PSORIASIS
     Dosage: UNK
  5. L-THYROXIN [Suspect]
     Active Substance: LEVOTHYROXINE SODIUM
     Indication: PRODUCT USED FOR UNKNOWN INDICATION
     Dosage: 100 MICROGRAM(100 UG, UNK)
     Route: 048
  6. FLUTICASONE. [Concomitant]
     Active Substance: FLUTICASONE
     Indication: PRODUCT USED FOR UNKNOWN INDICATION
     Dosage: 2 DOSAGE FORM, QD
     Route: 045
  7. FLUTICASONE. [Concomitant]
     Active Substance: FLUTICASONE
     Dosage: 50/100 UG FOLLOWING DISCUSSION UNK
     Route: 055
  8. SALBUTAMOL [Suspect]
     Active Substance: ALBUTEROL
     Dosage: UNK
     Route: 055
  9. HUMIRA [Suspect]
     Active Substance: ADALIMUMAB
     Indication: PSORIASIS
     Dosage: 40 MILLIGRAM, BIWEEKLY
     Route: 058
     Dates: start: 20170629
  10. FLUTICASONE. [Concomitant]
     Active Substance: FLUTICASONE
     Dosage: 4 UNK
     Route: 045
  11. AIRFLUSAL FORSPIRO [Suspect]
     Active Substance: FLUTICASONE PROPIONATE\SALMETEROL XINAFOATE
     Indication: PRODUCT USED FOR UNKNOWN INDICATION
     Dosage: UNK
     Route: 055
     Dates: start: 20170715
  12. SALBUTAMOL [Concomitant]
     Active Substance: ALBUTEROL
     Indication: PRODUCT USED FOR UNKNOWN INDICATION
     Dosage: UNK
     Route: 055
  13. LEVOTHYROXINE. [Concomitant]
     Active Substance: LEVOTHYROXINE
     Indication: PRODUCT USED FOR UNKNOWN INDICATION
     Dosage: 125 MILLIGRAM, QD
     Route: 065
  14. AIRFLUSAL FORSPIRO [Concomitant]
     Active Substance: FLUTICASONE PROPIONATE\SALMETEROL XINAFOATE
     Indication: PRODUCT USED FOR UNKNOWN INDICATION
     Dosage: 2, UNK, QD
  15. AIRFLUSAL FORSPIRO [Suspect]
     Active Substance: FLUTICASONE PROPIONATE\SALMETEROL XINAFOATE
     Dosage: UNK
     Route: 055
  16. LEVOTHYROXINE. [Concomitant]
     Active Substance: LEVOTHYROXINE
     Dosage: UNK
  17. SALBUTAMOL [Suspect]
     Active Substance: ALBUTEROL
     Indication: PRODUCT USED FOR UNKNOWN INDICATION
     Dosage: BEFORE LEVOFLOXACIN INHALATION
     Route: 055
  18. AMJEVITA [Suspect]
     Active Substance: ADALIMUMAB-ATTO
     Indication: PSORIATIC ARTHROPATHY
     Dosage: 40 MILLIGRAM
     Dates: start: 20190626
  19. AIRFLUSAL FORSPIRO [Concomitant]
     Active Substance: FLUTICASONE PROPIONATE\SALMETEROL XINAFOATE
     Dosage: 2 OT
  20. EMSER SOLE [Concomitant]
     Dosage: AS REQUIRED 3 TIMES A DAY
  21. VIANI [Concomitant]
     Active Substance: FLUTICASONE PROPIONATE\SALMETEROL XINAFOATE
     Indication: PRODUCT USED FOR UNKNOWN INDICATION
     Dosage: 50/100 UG FOLLOWING DISCUSSION
     Route: 055

REACTIONS (36)
  - Pulmonary fibrosis [Not Recovered/Not Resolved]
  - Cystitis noninfective [Unknown]
  - Osteomyelitis [Recovered/Resolved]
  - Bronchitis [Unknown]
  - Respiratory tract infection [Recovered/Resolved]
  - Bacterial tracheitis [Recovered/Resolved]
  - Magnetic resonance imaging thoracic abnormal [Unknown]
  - Mucosal haemorrhage [Unknown]
  - Conjunctivitis allergic [Unknown]
  - Pulmonary oedema [Unknown]
  - Hyperthyroidism [Unknown]
  - Haemoptysis [Not Recovered/Not Resolved]
  - Pulmonary haemorrhage [Unknown]
  - Dyspnoea [Unknown]
  - Thyroid atrophy [Unknown]
  - Increased upper airway secretion [Unknown]
  - Hiatus hernia [Recovered/Resolved]
  - Drug intolerance [Unknown]
  - Immunodeficiency [Not Recovered/Not Resolved]
  - Lung disorder [Not Recovered/Not Resolved]
  - Chronic sinusitis [Unknown]
  - Bronchitis bacterial [Unknown]
  - Bronchiectasis [Unknown]
  - Blood immunoglobulin E increased [Unknown]
  - Breath sounds abnormal [Unknown]
  - Staphylococcal infection [Unknown]
  - Tracheobronchitis [Unknown]
  - Hilar lymphadenopathy [Unknown]
  - Traumatic lung injury [Unknown]
  - Bronchial obstruction [Unknown]
  - Inflammation [Unknown]
  - Pneumonia [Recovered/Resolved]
  - Infection susceptibility increased [Unknown]
  - Bronchial wall thickening [Unknown]
  - Haemophilus infection [Recovering/Resolving]
  - Asthma [Unknown]

NARRATIVE: CASE EVENT DATE: 2017
